FAERS Safety Report 19222714 (Version 1)
Quarter: 2021Q2

REPORT INFORMATION
  Report Type: Spontaneous
  Country: ES (occurrence: ES)
  Receive Date: 20210506
  Receipt Date: 20210506
  Transmission Date: 20210717
  Serious: Yes (Hospitalization, Other)
  Sender: FDA-Public Use
  Company Number: PHHY2017ES008843

PATIENT
  Age: 63 Year
  Sex: Male

DRUGS (1)
  1. OLMESARTAN [Suspect]
     Active Substance: OLMESARTAN
     Indication: PRODUCT USED FOR UNKNOWN INDICATION
     Dosage: 20 MG
     Route: 065

REACTIONS (8)
  - Sprue-like enteropathy [Recovering/Resolving]
  - Electrolyte imbalance [Unknown]
  - Weight decreased [Recovering/Resolving]
  - Metabolic acidosis [Unknown]
  - Malnutrition [Unknown]
  - Diarrhoea [Recovering/Resolving]
  - Gastrointestinal disorder [Recovering/Resolving]
  - Renal failure [Unknown]
